FAERS Safety Report 23083458 (Version 3)
Quarter: 2023Q4

REPORT INFORMATION
  Report Type: Report from Study
  Country: MX (occurrence: MX)
  Receive Date: 20231019
  Receipt Date: 20231101
  Transmission Date: 20240110
  Serious: Yes (Hospitalization)
  Sender: FDA-Public Use
  Company Number: MX-002147023-NVSC2023MX224504

PATIENT
  Sex: Male
  Weight: 90 kg

DRUGS (1)
  1. ELTROMBOPAG OLAMINE [Suspect]
     Active Substance: ELTROMBOPAG OLAMINE
     Indication: Platelet count decreased
     Dosage: 3 DOSAGE FORM, QD
     Route: 048
     Dates: start: 20231005

REACTIONS (2)
  - Platelet count decreased [Unknown]
  - Anaemia [Unknown]
